FAERS Safety Report 7542214-8 (Version None)
Quarter: 2011Q2

REPORT INFORMATION
  Report Type: 
  Country: None (occurrence: None)
  Receive Date: 20110524
  Receipt Date: 20110308
  Transmission Date: 20111010
  Serious: No
  Sender: FDA-Public Use
  Company Number: 028976

PATIENT
  Sex: Female

DRUGS (1)
  1. CIMZIA [Suspect]
     Indication: CROHN'S DISEASE
     Dosage: (400 MG 1X/2 WEEKS, LOADING DOSE SUBCUTANEOUS)
     Route: 058
     Dates: start: 20110203

REACTIONS (7)
  - HEADACHE [None]
  - ARTHRALGIA [None]
  - FATIGUE [None]
  - SOMNOLENCE [None]
  - DECREASED APPETITE [None]
  - INJECTION SITE PAIN [None]
  - FREQUENT BOWEL MOVEMENTS [None]
